FAERS Safety Report 5233922-2 (Version None)
Quarter: 2007Q1

REPORT INFORMATION
  Report Type: 
  Country: None (occurrence: None)
  Receive Date: 20070208
  Receipt Date: 20070126
  Transmission Date: 20070707
  Serious: Yes (Hospitalization)
  Sender: FDA-Public Use
  Company Number: US-BRISTOL-MYERS SQUIBB COMPANY-13659313

PATIENT
  Age: 37 Year
  Sex: Female
  Weight: 73 kg

DRUGS (4)
  1. COUMADIN [Suspect]
     Indication: THROMBOSIS
     Dosage: CURRENTLY TAKES WARFARIN 7MG(ONE EACH OF 3MG AND 4MG TABLET)
     Route: 048
  2. LEVOTHYROXINE SODIUM [Concomitant]
  3. PRILOSEC [Concomitant]
  4. LORTAB [Concomitant]

REACTIONS (1)
  - THROMBOSIS [None]
